FAERS Safety Report 9220811 (Version 1)
Quarter: 2013Q2

REPORT INFORMATION
  Report Type: Spontaneous
  Country: GB (occurrence: GB)
  Receive Date: 20130409
  Receipt Date: 20130409
  Transmission Date: 20140414
  Serious: Yes (Disabling, Other)
  Sender: FDA-Public Use
  Company Number: GB-TEVA-396326ISR

PATIENT
  Age: 48 Year
  Sex: Female
  Weight: 100 kg

DRUGS (8)
  1. NAPROXEN [Suspect]
     Dates: start: 20130227
  2. GLYCERYL TRINITRATE [Concomitant]
     Dates: start: 20120904
  3. ADIZEM-SR [Concomitant]
     Dates: start: 20121128
  4. OMEPRAZOLE [Concomitant]
     Dates: start: 20121220
  5. MUCOPOLYSACCHARIDES NOS [Concomitant]
     Dates: start: 20121220, end: 20121225
  6. PARACETAMOL [Concomitant]
     Dates: start: 20121220, end: 20130104
  7. NORTRIPTYLINE [Concomitant]
     Dates: start: 20130102
  8. TRAMADOL [Concomitant]
     Dates: start: 20130319

REACTIONS (2)
  - Angina pectoris [Recovered/Resolved]
  - Arteriospasm coronary [Recovered/Resolved]
